FAERS Safety Report 5625755-X (Version None)
Quarter: 2008Q1

REPORT INFORMATION
  Report Type: 
  Country: None (occurrence: None)
  Receive Date: 20080214
  Receipt Date: 20080201
  Transmission Date: 20080703
  Serious: Yes (Other)
  Sender: FDA-Public Use
  Company Number: IT-BRISTOL-MYERS SQUIBB COMPANY-13999909

PATIENT
  Age: 57 Year
  Sex: Female

DRUGS (5)
  1. ENDOXAN [Suspect]
     Indication: ALVEOLITIS
     Route: 042
     Dates: start: 20060101, end: 20070626
  2. ESOMEPRAZOLE MAGNESIUM [Concomitant]
     Route: 048
     Dates: start: 20050207, end: 20070626
  3. RISEDRONATE SODIUM [Concomitant]
     Route: 048
     Dates: start: 20050207, end: 20070626
  4. TICLOPIDINE HCL [Concomitant]
     Dates: start: 20060202, end: 20070626
  5. METHYLPREDNISOLONE [Concomitant]
     Route: 048
     Dates: start: 20050707, end: 20070626

REACTIONS (2)
  - GAMMA-GLUTAMYLTRANSFERASE INCREASED [None]
  - TRANSAMINASES INCREASED [None]
